FAERS Safety Report 18271792 (Version 1)
Quarter: 2020Q3

REPORT INFORMATION
  Report Type: Spontaneous
  Country: US (occurrence: US)
  Receive Date: 20200915
  Receipt Date: 20200915
  Transmission Date: 20201103
  Serious: Yes (Death)
  Sender: FDA-Public Use
  Company Number: None

PATIENT
  Sex: Female

DRUGS (10)
  1. METHADONE [Concomitant]
     Active Substance: METHADONE HYDROCHLORIDE
  2. LIDOCAINE. [Concomitant]
     Active Substance: LIDOCAINE
  3. MIRTAZAPIN [Concomitant]
     Active Substance: MIRTAZAPINE
  4. DOXEPIN [Concomitant]
     Active Substance: DOXEPIN
  5. TRIAMCIN [Concomitant]
  6. PREGABALIN. [Concomitant]
     Active Substance: PREGABALIN
  7. RISPERIDONE. [Concomitant]
     Active Substance: RISPERIDONE
  8. OXYCOD ONE [Concomitant]
  9. COLLAGENASE SANTYL [Suspect]
     Active Substance: COLLAGENASE CLOSTRIDIUM HISTOLYTICUM
     Indication: PRODUCT USED FOR UNKNOWN INDICATION
     Route: 061
     Dates: start: 20200625
  10. SUCRALFATE. [Concomitant]
     Active Substance: SUCRALFATE

REACTIONS (1)
  - Death [None]
